FAERS Safety Report 23821121 (Version 3)
Quarter: 2024Q2

REPORT INFORMATION
  Report Type: Report from Study
  Country: US (occurrence: US)
  Receive Date: 20240506
  Receipt Date: 20240514
  Transmission Date: 20240716
  Serious: Yes (Death, Life-Threatening, Hospitalization)
  Sender: FDA-Public Use
  Company Number: US-002147023-NVSC2024US093423

PATIENT
  Age: 58 Year
  Sex: Female
  Weight: 118.8 kg

DRUGS (7)
  1. LAMPRENE [Suspect]
     Active Substance: CLOFAZIMINE
     Indication: Mycobacterium abscessus infection
     Dosage: 100 MG, QD
     Route: 048
     Dates: start: 20240416
  2. LAMPRENE [Suspect]
     Active Substance: CLOFAZIMINE
     Dosage: 100 MG, QD
     Route: 048
     Dates: start: 20240430, end: 20240501
  3. TIGECYCLINE [Concomitant]
     Active Substance: TIGECYCLINE
     Indication: Mycobacterium abscessus infection
     Dosage: 100 MG, BID
     Route: 042
     Dates: start: 20240109
  4. TIGECYCLINE [Concomitant]
     Active Substance: TIGECYCLINE
     Dosage: 100 MG, QD
     Route: 065
     Dates: end: 20240504
  5. IMIPENEM [Concomitant]
     Active Substance: IMIPENEM
     Indication: Mycobacterium abscessus infection
     Dosage: 500 MG, BID
     Route: 042
     Dates: start: 20240105, end: 20240505
  6. AMIKACIN [Concomitant]
     Active Substance: AMIKACIN
     Indication: Mycobacterium abscessus infection
     Dosage: 500 MG, TIW
     Route: 065
     Dates: start: 20240301, end: 20240503
  7. CEFTAROLINE [Concomitant]
     Active Substance: CEFTAROLINE
     Indication: Mycobacterium abscessus infection
     Dosage: 200 MG, BID
     Route: 042
     Dates: start: 20240301, end: 20240505

REACTIONS (11)
  - Septic shock [Fatal]
  - Candida infection [Fatal]
  - Hypoglycaemia [Recovered/Resolved]
  - Encephalopathy [Recovered/Resolved]
  - Hypotension [Not Recovered/Not Resolved]
  - Pleural effusion [Not Recovered/Not Resolved]
  - Localised oedema [Unknown]
  - Blood alkaline phosphatase increased [Unknown]
  - Aspartate aminotransferase increased [Unknown]
  - White blood cell count increased [Unknown]
  - Supraventricular extrasystoles [Unknown]

NARRATIVE: CASE EVENT DATE: 20240501
